FAERS Safety Report 24437724 (Version 4)
Quarter: 2024Q4

REPORT INFORMATION
  Report Type: Spontaneous
  Country: US (occurrence: US)
  Receive Date: 20241015
  Receipt Date: 20241118
  Transmission Date: 20250115
  Serious: Yes (Hospitalization)
  Sender: PHARMING GROUP
  Company Number: US-PHARMING-PHAUS2024000876

PATIENT

DRUGS (5)
  1. RUCONEST [Suspect]
     Active Substance: CONESTAT ALFA
     Indication: Hereditary angioedema with C1 esterase inhibitor deficiency
     Dosage: 3000 IU, ONCE WEEKLY
     Route: 042
     Dates: start: 20180801
  2. RUCONEST [Suspect]
     Active Substance: CONESTAT ALFA
     Indication: Hereditary angioedema
     Dosage: 3000 IU, EVERY WEEK
     Route: 042
     Dates: start: 201809
  3. RUCONEST [Suspect]
     Active Substance: CONESTAT ALFA
     Dosage: 3000 IU, EVERY WEEK
     Route: 042
     Dates: start: 201809
  4. HEPARIN [Concomitant]
     Active Substance: HEPARIN SODIUM
     Indication: Product used for unknown indication
  5. EPINEPHRINE [Concomitant]
     Active Substance: EPINEPHRINE
     Indication: Product used for unknown indication

REACTIONS (9)
  - Loss of personal independence in daily activities [Unknown]
  - Anal incontinence [Unknown]
  - Asthenia [Unknown]
  - Urinary tract infection [Unknown]
  - Delusion [Unknown]
  - Confusional state [Unknown]
  - COVID-19 [Unknown]
  - Ammonia [Unknown]
  - Intentional product use issue [Unknown]

NARRATIVE: CASE EVENT DATE: 20241001
